FAERS Safety Report 24007649 (Version 9)
Quarter: 2024Q4

REPORT INFORMATION
  Report Type: Spontaneous
  Country: US (occurrence: US)
  Receive Date: 20240625
  Receipt Date: 20241230
  Transmission Date: 20250114
  Serious: No
  Sender: BRISTOL-MYERS SQUIBB COMPANY
  Company Number: US-BRISTOL-MYERS SQUIBB COMPANY-2024-101147

PATIENT
  Age: 82 Year
  Sex: Male

DRUGS (7)
  1. LENALIDOMIDE [Suspect]
     Active Substance: LENALIDOMIDE
     Indication: Plasma cell myeloma
     Route: 048
  2. LENALIDOMIDE [Suspect]
     Active Substance: LENALIDOMIDE
     Route: 048
  3. LENALIDOMIDE [Suspect]
     Active Substance: LENALIDOMIDE
     Route: 048
  4. LENALIDOMIDE [Suspect]
     Active Substance: LENALIDOMIDE
     Route: 048
  5. LENALIDOMIDE [Suspect]
     Active Substance: LENALIDOMIDE
     Route: 048
  6. LENALIDOMIDE [Suspect]
     Active Substance: LENALIDOMIDE
     Route: 048
  7. DEXAMETHASONE [Suspect]
     Active Substance: DEXAMETHASONE
     Indication: Product used for unknown indication

REACTIONS (11)
  - Irritable bowel syndrome [Unknown]
  - White blood cell count decreased [Recovered/Resolved]
  - Phlebitis [Recovered/Resolved]
  - Pain in extremity [Recovered/Resolved]
  - Skin irritation [Recovered/Resolved]
  - Rash pruritic [Not Recovered/Not Resolved]
  - Rash [Recovered/Resolved]
  - Gastrooesophageal reflux disease [Recovering/Resolving]
  - Asthenia [Recovering/Resolving]
  - Benign prostatic hyperplasia [Recovering/Resolving]
  - Haemorrhage [Recovering/Resolving]
